FAERS Safety Report 7503513-9 (Version None)
Quarter: 2011Q2

REPORT INFORMATION
  Report Type: 
  Country: None (occurrence: None)
  Receive Date: 20110525
  Receipt Date: 20110520
  Transmission Date: 20111010
  Serious: Yes (Hospitalization)
  Sender: FDA-Public Use
  Company Number: AT-ROCHE-776792

PATIENT
  Sex: Female
  Weight: 49 kg

DRUGS (3)
  1. VX-950 [Suspect]
     Route: 065
     Dates: start: 20110315
  2. RIBAVIRIN [Suspect]
     Route: 065
     Dates: start: 20110315
  3. PEGINTERFERON ALFA-2A [Suspect]
     Route: 065
     Dates: start: 20110315

REACTIONS (2)
  - ANAEMIA [None]
  - HYPOKALAEMIA [None]
